FAERS Safety Report 5873559-5 (Version None)
Quarter: 2008Q3

REPORT INFORMATION
  Report Type: 
  Country: None (occurrence: None)
  Receive Date: 20080908
  Receipt Date: 20080410
  Transmission Date: 20090109
  Serious: No
  Sender: FDA-Public Use
  Company Number: US-BAYER-200811652BCC

PATIENT
  Sex: Female
  Weight: 60 kg

DRUGS (9)
  1. ALEVE (CAPLET) [Suspect]
     Indication: NECK PAIN
     Dosage: TOTAL DAILY DOSE: 440 MG  UNIT DOSE: 220 MG
     Route: 048
  2. EXCEDRIN (MIGRAINE) [Concomitant]
  3. IBUPROFEN [Concomitant]
  4. FOSAMAX [Concomitant]
  5. EVISTA [Concomitant]
  6. CALCIUM [Concomitant]
  7. DIOVAN [Concomitant]
  8. NORVASC [Concomitant]
  9. FLEXERIL [Concomitant]

REACTIONS (3)
  - ARTHRALGIA [None]
  - HEADACHE [None]
  - NECK PAIN [None]
